FAERS Safety Report 24914503 (Version 1)
Quarter: 2025Q1

REPORT INFORMATION
  Report Type: Spontaneous
  Country: IL (occurrence: IL)
  Receive Date: 20250203
  Receipt Date: 20250203
  Transmission Date: 20250409
  Serious: Yes (Hospitalization)
  Sender: AMGEN
  Company Number: IL-AMGEN-ISRSP2025017689

PATIENT
  Age: 67 Year
  Sex: Female

DRUGS (10)
  1. ROMIPLOSTIM [Suspect]
     Active Substance: ROMIPLOSTIM
     Indication: Immune thrombocytopenia
     Route: 065
     Dates: start: 2023
  2. ROMIPLOSTIM [Suspect]
     Active Substance: ROMIPLOSTIM
     Dosage: 750 MICROGRAM, QWK (10 MCG/KG)
     Route: 065
  3. ROMIPLOSTIM [Suspect]
     Active Substance: ROMIPLOSTIM
     Route: 065
  4. ROMIPLOSTIM [Suspect]
     Active Substance: ROMIPLOSTIM
     Dosage: 250 MICROGRAM, QWK
     Route: 065
  5. CORTICOSTEROID NOS [Concomitant]
     Active Substance: CORTICOSTEROID NOS
     Indication: Immune thrombocytopenia
  6. HUMAN IMMUNOGLOBULIN G [Concomitant]
     Active Substance: HUMAN IMMUNOGLOBULIN G
     Indication: Immune thrombocytopenia
     Route: 040
     Dates: start: 2023
  7. RITUXIMAB [Concomitant]
     Active Substance: RITUXIMAB
     Indication: Immune thrombocytopenia
  8. ELTROMBOPAG [Concomitant]
     Active Substance: ELTROMBOPAG
     Indication: Immune thrombocytopenia
     Route: 065
  9. CYCLOSPORINE [Concomitant]
     Active Substance: CYCLOSPORINE
     Indication: Immune thrombocytopenia
  10. FOSTAMATINIB [Concomitant]
     Active Substance: FOSTAMATINIB
     Indication: Immune thrombocytopenia

REACTIONS (7)
  - Pneumonia [Unknown]
  - Subarachnoid haemorrhage [Unknown]
  - Pulmonary alveolar haemorrhage [Unknown]
  - Immune thrombocytopenia [Recovering/Resolving]
  - Antiphospholipid antibodies positive [Unknown]
  - Conjunctival haemorrhage [Unknown]
  - Treatment failure [Unknown]
